FAERS Safety Report 15347600 (Version 1)
Quarter: 2018Q3

REPORT INFORMATION
  Report Type: Spontaneous
  Country: US (occurrence: US)
  Receive Date: 20180904
  Receipt Date: 20180904
  Transmission Date: 20181010
  Serious: No
  Sender: FDA-Public Use
  Company Number: US-SA-2018SA246756

PATIENT
  Sex: Female

DRUGS (14)
  1. AUBAGIO [Suspect]
     Active Substance: TERIFLUNOMIDE
     Indication: MULTIPLE SCLEROSIS
     Dosage: 7 MG, QD
     Route: 048
  2. LISINOPRIL AND HYDROCHLOROTHIAZIDE [Concomitant]
     Active Substance: HYDROCHLOROTHIAZIDE\LISINOPRIL
  3. PREDNISONE. [Concomitant]
     Active Substance: PREDNISONE
  4. PRESERVISION [Concomitant]
     Active Substance: MINERALS\VITAMINS
  5. FLUCONAZOLE. [Concomitant]
     Active Substance: FLUCONAZOLE
  6. METHOCARBAMOL. [Concomitant]
     Active Substance: METHOCARBAMOL
  7. MELATONIN [Concomitant]
     Active Substance: MELATONIN
  8. SINGULAIR [Concomitant]
     Active Substance: MONTELUKAST SODIUM
  9. ACTONEL [Concomitant]
     Active Substance: RISEDRONATE SODIUM
  10. BIOTIN [Concomitant]
     Active Substance: BIOTIN
  11. MAGNESIUM [Concomitant]
     Active Substance: MAGNESIUM
  12. TURMERIC [CURCUMA LONGA RHIZOME] [Concomitant]
  13. IRON [Concomitant]
     Active Substance: IRON
  14. MELOXICAM. [Concomitant]
     Active Substance: MELOXICAM

REACTIONS (2)
  - Alopecia [Not Recovered/Not Resolved]
  - Adverse event [Not Recovered/Not Resolved]
